FAERS Safety Report 10264574 (Version 1)
Quarter: 2014Q2

REPORT INFORMATION
  Report Type: Spontaneous
  Country: US (occurrence: US)
  Receive Date: 20140627
  Receipt Date: 20140627
  Transmission Date: 20141212
  Serious: No
  Sender: FDA-Public Use
  Company Number: US-TEVA-490222USA

PATIENT
  Age: 31 Year
  Sex: Female

DRUGS (5)
  1. COPAXONE [Suspect]
     Dates: start: 20140505
  2. FOLIC ACID [Concomitant]
  3. BIOTIN [Concomitant]
  4. CALCIUM [Concomitant]
  5. MULTIVITAMIN [Concomitant]

REACTIONS (1)
  - Chest pain [Recovered/Resolved]
